FAERS Safety Report 17236667 (Version 2)
Quarter: 2020Q1

REPORT INFORMATION
  Report Type: Report from Study
  Country: US (occurrence: US)
  Receive Date: 20200106
  Receipt Date: 20200108
  Transmission Date: 20200409
  Serious: Yes (Death)
  Sender: FDA-Public Use
  Company Number: US-PFIZER INC-2020000014

PATIENT
  Sex: Female

DRUGS (6)
  1. EPIRUBICIN HCL [Suspect]
     Active Substance: EPIRUBICIN HYDROCHLORIDE
     Indication: HER-2 POSITIVE BREAST CANCER
     Dosage: 75 MG/M2, CYCLIC (ON DAY 1 OF A 21-DAY CYCLE FOR 4 CYCLES)
  2. PACLITAXEL. [Suspect]
     Active Substance: PACLITAXEL
     Indication: HER-2 POSITIVE BREAST CANCER
     Dosage: 80 MG/M2, CYCLIC (FOUR 21-DAY CYCLES, ON DAYS 1, 8, AND 15)
  3. CYCLOPHOSPHAMIDE. [Suspect]
     Active Substance: CYCLOPHOSPHAMIDE
     Indication: HER-2 POSITIVE BREAST CANCER
     Dosage: 500 MG/M2, CYCLIC (ON DAY 1 OF A 21-DAY CYCLE FOR 4 CYCLES)
  4. FLUOROURACIL. [Suspect]
     Active Substance: FLUOROURACIL
     Indication: HER-2 POSITIVE BREAST CANCER
     Dosage: 500 MG/M2, CYCLIC (ON DAY 1 OF A 21-DAY CYCLE FOR 4 CYCLES)
  5. TRASTUZUMAB. [Suspect]
     Active Substance: TRASTUZUMAB
     Dosage: 2 MG/KG, CYCLIC (FOUR 21-DAY CYCLES, ON DAYS 1, 8, AND 15, SUBSEQUENT DOSES)
  6. TRASTUZUMAB. [Suspect]
     Active Substance: TRASTUZUMAB
     Indication: HER-2 POSITIVE BREAST CANCER
     Dosage: 4 MG/KG, CYCLIC (FOUR 21-DAY CYCLES, ON DAYS 1, 8, AND 15, INITIAL DOSE)

REACTIONS (1)
  - Overdose [Fatal]
